FAERS Safety Report 7679439-7 (Version None)
Quarter: 2011Q3

REPORT INFORMATION
  Report Type: 
  Country: None (occurrence: None)
  Receive Date: 20110808
  Receipt Date: 20110726
  Transmission Date: 20111222
  Serious: Yes (Other)
  Sender: FDA-Public Use
  Company Number: B0737065A

PATIENT
  Age: 26 Year
  Sex: Female

DRUGS (3)
  1. WARFARIN SODIUM [Suspect]
     Indication: ANTIPHOSPHOLIPID SYNDROME
  2. FONDAPARINUX SODIUM [Suspect]
     Indication: COAGULOPATHY
  3. HEPARIN [Suspect]
     Indication: THROMBOSIS PROPHYLAXIS

REACTIONS (2)
  - MATERNAL EXPOSURE DURING PREGNANCY [None]
  - HEPARIN-INDUCED THROMBOCYTOPENIA [None]
